FAERS Safety Report 16803579 (Version 1)
Quarter: 2019Q3

REPORT INFORMATION
  Report Type: Spontaneous
  Country: PL (occurrence: PL)
  Receive Date: 20190913
  Receipt Date: 20190913
  Transmission Date: 20191005
  Serious: Yes (Other)
  Sender: FDA-Public Use
  Company Number: PL-ACCORD-154308

PATIENT
  Age: 37 Year
  Sex: Male

DRUGS (6)
  1. CARBOPLATIN. [Suspect]
     Active Substance: CARBOPLATIN
     Indication: METASTASIS
     Dosage: DECEMBER 2016-MAY 2017, 3 COURSES
  2. CISPLATIN. [Suspect]
     Active Substance: CISPLATIN
     Indication: METASTASIS
     Dosage: SECOND LINE CHEMOTHERAPY
     Dates: start: 201607
  3. IFOSFAMIDE. [Suspect]
     Active Substance: IFOSFAMIDE
     Dates: start: 201612
  4. PACLITAXEL/PACLITAXEL LIPOSOME [Suspect]
     Active Substance: PACLITAXEL
     Indication: METASTASIS
     Dosage: SECOND LINE CHEMOTHERAPY
     Dates: start: 201607
  5. IFOSFAMIDE. [Suspect]
     Active Substance: IFOSFAMIDE
     Indication: METASTASIS
     Dosage: SECOND LINE CHEMOTHERAPY
     Dates: start: 201607
  6. PACLITAXEL/PACLITAXEL LIPOSOME [Suspect]
     Active Substance: PACLITAXEL
     Indication: METASTASIS
     Dates: start: 201612

REACTIONS (1)
  - Polyneuropathy [Not Recovered/Not Resolved]
